FAERS Safety Report 14110484 (Version 1)
Quarter: 2017Q4

REPORT INFORMATION
  Report Type: Report from Study
  Country: NL (occurrence: NL)
  Receive Date: 20171020
  Receipt Date: 20171020
  Transmission Date: 20180321
  Serious: Yes (Hospitalization, Other)
  Sender: FDA-Public Use
  Company Number: NL-AMGEN-NLDSL2017157685

PATIENT
  Sex: Male

DRUGS (1)
  1. XGEVA [Suspect]
     Active Substance: DENOSUMAB
     Indication: PROSTATE CANCER
     Dosage: 120 MG, Q2WK
     Route: 065

REACTIONS (5)
  - Arthropathy [Unknown]
  - Fear [Unknown]
  - Emotional disorder [Unknown]
  - Fistula [Unknown]
  - Hospitalisation [Unknown]
